FAERS Safety Report 9294969 (Version 2)
Quarter: 2013Q2

REPORT INFORMATION
  Report Type: Spontaneous
  Country: US (occurrence: US)
  Receive Date: 20130517
  Receipt Date: 20130527
  Transmission Date: 20140414
  Serious: Yes (Other)
  Sender: FDA-Public Use
  Company Number: US-BRISTOL-MYERS SQUIBB COMPANY-18871947

PATIENT
  Age: 55 Year
  Sex: Female

DRUGS (3)
  1. ABILIFY [Suspect]
     Indication: MAJOR DEPRESSION
  2. ELAVIL [Concomitant]
  3. CELEXA [Concomitant]

REACTIONS (1)
  - Stevens-Johnson syndrome [Unknown]
